FAERS Safety Report 8021182-9 (Version None)
Quarter: 2011Q4

REPORT INFORMATION
  Report Type: 
  Country: None (occurrence: None)
  Receive Date: 20111221
  Receipt Date: 20111206
  Transmission Date: 20120403
  Serious: Yes (Other)
  Sender: FDA-Public Use
  Company Number: 2011028858

PATIENT
  Sex: Male
  Weight: 97.0698 kg

DRUGS (33)
  1. HIZENTRA [Suspect]
     Indication: IMMUNODEFICIENCY COMMON VARIABLE
  2. SIMVASTATIN [Concomitant]
  3. FINASTERIDE [Concomitant]
  4. SYNTHROID [Concomitant]
  5. FUROSEMIDE [Concomitant]
  6. GABAPENTIN [Concomitant]
  7. HIZENTRA [Suspect]
     Indication: IMMUNODEFICIENCY COMMON VARIABLE
     Dates: start: 20110501
  8. HYDROCODONE BITARTRATE + ACETAMINOPHEN [Concomitant]
  9. CLARITIN [Concomitant]
  10. AMBIEN CR [Concomitant]
  11. BUPROPION XL (BUPROPION) [Concomitant]
  12. VITAMIN E (VITAMIN E /01552201/) [Concomitant]
  13. HIZENTRA [Suspect]
     Indication: IMMUNODEFICIENCY COMMON VARIABLE
     Dosage: 4 GM 20 ML VIA SUBCUTANEOUS
     Route: 058
     Dates: start: 20101229
  14. CASODEX [Concomitant]
  15. OMEGA-3 (OMEGA-3 FATTY ACIDS) [Concomitant]
  16. MUCINEX [Concomitant]
  17. POTASSIUM CHLORIDE (POTASSIUM CHLOIDE) [Concomitant]
  18. HIZENTRA [Suspect]
     Indication: IMMUNODEFICIENCY COMMON VARIABLE
     Dosage: (16 G 1X/WEEK, INFUSED 80 ML VIA 6 SITES OVER 1 HOUR 27 MINUTES SUBCUTANEOUS)
     Route: 058
     Dates: start: 20101201
  19. ALBUTEROL [Concomitant]
  20. FEXOFENADINE HCL [Concomitant]
  21. PLAVIX [Concomitant]
  22. PRIMIDONE [Concomitant]
  23. LEXAPRO [Concomitant]
  24. OMNARIS (CICLESONIDE) [Concomitant]
  25. CO-Q10 (UBIDECARENONE) [Concomitant]
  26. AMLODIPINE [Concomitant]
  27. SYMBICORT [Concomitant]
  28. NAPROXEN [Concomitant]
  29. MULTIVITAMIN (DAILY MULTIVITAMIN) [Concomitant]
  30. LANTUS [Concomitant]
  31. DIOVAN [Concomitant]
  32. ZANTAC [Concomitant]
  33. SINGULAIR [Concomitant]

REACTIONS (3)
  - RESPIRATORY TRACT INFECTION [None]
  - EAR INFECTION [None]
  - INFUSION SITE PRURITUS [None]
